FAERS Safety Report 5584337-9 (Version None)
Quarter: 2008Q1

REPORT INFORMATION
  Report Type: 
  Country: None (occurrence: None)
  Receive Date: 20080108
  Receipt Date: 20071016
  Transmission Date: 20080703
  Serious: No
  Sender: FDA-Public Use
  Company Number: US-BAYER-200713361BCC

PATIENT
  Age: 72 Year
  Sex: Female
  Weight: 50 kg

DRUGS (8)
  1. ALEVE [Suspect]
     Indication: ARTHRITIS
     Dosage: UNIT DOSE: 220 MG
     Route: 048
  2. ALEVE (CAPLET) [Suspect]
     Indication: ARTHRITIS
     Dosage: UNIT DOSE: 220 MG
     Route: 048
  3. BAYER LOW DOSE ENTERIC ASPIRIN [Suspect]
     Indication: ISCHAEMIC HEART DISEASE PROPHYLAXIS
     Route: 048
     Dates: start: 20020101
  4. LEVOXYL [Concomitant]
  5. PROTONIX [Concomitant]
  6. FOSAMAX [Concomitant]
  7. LYRICA [Concomitant]
  8. EQUATE ASPIRIN [Concomitant]

REACTIONS (1)
  - ALOPECIA [None]
